FAERS Safety Report 12120676 (Version 1)
Quarter: 2016Q1

REPORT INFORMATION
  Report Type: Spontaneous
  Country: US (occurrence: US)
  Receive Date: 20160226
  Receipt Date: 20160226
  Transmission Date: 20160526
  Serious: No
  Sender: FDA-Public Use
  Company Number: US-ALLERGAN-1318925US

PATIENT
  Sex: Female

DRUGS (6)
  1. REFRESH PLUS [Suspect]
     Active Substance: CARBOXYMETHYLCELLULOSE SODIUM
     Indication: EYE IRRITATION
  2. REFRESH OPTIVE SENSITIVE [Suspect]
     Active Substance: CARBOXYMETHYLCELLULOSE SODIUM\GLYCERIN
     Indication: EYE IRRITATION
  3. REFRESH PLUS [Suspect]
     Active Substance: CARBOXYMETHYLCELLULOSE SODIUM
     Indication: EYE PAIN
     Route: 047
  4. REFRESH OPTIVE SENSITIVE [Suspect]
     Active Substance: CARBOXYMETHYLCELLULOSE SODIUM\GLYCERIN
     Indication: EYE PAIN
  5. REFRESH OPTIVE SENSITIVE [Suspect]
     Active Substance: CARBOXYMETHYLCELLULOSE SODIUM\GLYCERIN
     Indication: OCULAR HYPERAEMIA
  6. REFRESH PLUS [Suspect]
     Active Substance: CARBOXYMETHYLCELLULOSE SODIUM
     Indication: OCULAR HYPERAEMIA

REACTIONS (4)
  - Drug ineffective [Unknown]
  - Eye irritation [Recovered/Resolved]
  - Superficial injury of eye [Recovered/Resolved]
  - Incorrect dose administered [Unknown]
